FAERS Safety Report 19891865 (Version 1)
Quarter: 2021Q3

REPORT INFORMATION
  Report Type: Spontaneous
  Country: US (occurrence: US)
  Receive Date: 20210928
  Receipt Date: 20210928
  Transmission Date: 20211014
  Serious: Yes (Death, Other)
  Sender: FDA-Public Use
  Company Number: US-PERRIGO-21US027930

PATIENT
  Age: 66 Year
  Sex: Male

DRUGS (2)
  1. RANITIDINE HYDROCHLORIDE (156) [Suspect]
     Active Substance: RANITIDINE HYDROCHLORIDE
     Indication: DYSPEPSIA
     Dosage: DOSE FREQUENCY: OTHER ? UNKNOWN AT THIS TIME, WILL SUPPLEMENT WHEN MEDICAL RECORDS ARE RECEIVED.
     Route: 048
     Dates: start: 201801, end: 201904
  2. RANITIDINE HYDROCHLORIDE (156) [Suspect]
     Active Substance: RANITIDINE HYDROCHLORIDE
     Indication: DYSPEPSIA

REACTIONS (3)
  - Hepatic cancer [Fatal]
  - Lung neoplasm malignant [Fatal]
  - Bone cancer [Fatal]

NARRATIVE: CASE EVENT DATE: 20181129
